FAERS Safety Report 6642594-1 (Version None)
Quarter: 2010Q1

REPORT INFORMATION
  Report Type: 
  Country: None (occurrence: None)
  Receive Date: 20100319
  Receipt Date: 20100125
  Transmission Date: 20100710
  Serious: Yes (Death, Other)
  Sender: FDA-Public Use
  Company Number: US-PURDUE-USA-2010-0041968

PATIENT
  Sex: Male

DRUGS (3)
  1. OXYCONTIN [Suspect]
     Indication: ANALGESIC THERAPY
     Dosage: 60 MG, TID
     Dates: start: 20010725, end: 20050801
  2. DILANTIN [Concomitant]
  3. DEPAKOTE [Concomitant]

REACTIONS (6)
  - COMPLETED SUICIDE [None]
  - CONVULSION [None]
  - DEPRESSION [None]
  - GUN SHOT WOUND [None]
  - HEADACHE [None]
  - PAIN [None]
